FAERS Safety Report 6369812-1 (Version None)
Quarter: 2009Q3

REPORT INFORMATION
  Report Type: 
  Country: None (occurrence: None)
  Receive Date: 20090923
  Receipt Date: 20090918
  Transmission Date: 20100115
  Serious: Yes (Hospitalization)
  Sender: FDA-Public Use
  Company Number: HU-BRISTOL-MYERS SQUIBB COMPANY-14743819

PATIENT
  Age: 68 Year
  Sex: Male
  Weight: 80 kg

DRUGS (3)
  1. CETUXIMAB [Suspect]
     Indication: GASTROOESOPHAGEAL CANCER
     Dosage: RECENT INF ON 03AUG09,CETUXIMAB 5MG/ML
     Route: 042
     Dates: start: 20090504
  2. CISPLATIN [Suspect]
     Indication: GASTROOESOPHAGEAL CANCER
     Dosage: MOST RECENT INF ON 03AUG09,DAY 1 OF CYCLE
     Route: 042
     Dates: start: 20090504
  3. XELODA [Suspect]
     Indication: GASTROOESOPHAGEAL CANCER
     Dosage: ON DAY 1-15, MOST RECENT INF ON 07AUG09 FORM-TABS
     Route: 048
     Dates: start: 20090504

REACTIONS (1)
  - DEEP VEIN THROMBOSIS [None]
